FAERS Safety Report 23944099 (Version 1)
Quarter: 2024Q2

REPORT INFORMATION
  Report Type: Spontaneous
  Country: HU (occurrence: HU)
  Receive Date: 20240606
  Receipt Date: 20240606
  Transmission Date: 20240716
  Serious: Yes (Hospitalization)
  Sender: FDA-Public Use
  Company Number: HU-SA-2024SA163515

PATIENT
  Age: 39 Year
  Sex: Female

DRUGS (7)
  1. LEFLUNOMIDE [Suspect]
     Active Substance: LEFLUNOMIDE
     Indication: Immunosuppression
     Dosage: UNK UNK, Q6W
  2. METHYLPREDNISOLONE [Suspect]
     Active Substance: METHYLPREDNISOLONE
     Indication: Immunosuppression
     Dosage: 4 MG
  3. METHOTREXATE [Suspect]
     Active Substance: METHOTREXATE
     Indication: Immunosuppression
     Dosage: 22.5 MG, QD
  4. CALCIUM [Concomitant]
     Active Substance: CALCIUM
     Indication: Osteoporosis prophylaxis
  5. VITAMINS NOS [Concomitant]
     Active Substance: VITAMINS
     Indication: Osteoporosis prophylaxis
     Dosage: 6000 IU
  6. ALENDRONATE [Concomitant]
     Active Substance: ALENDRONATE SODIUM
     Indication: Osteoporosis prophylaxis
  7. TOFACITINIB [Concomitant]
     Active Substance: TOFACITINIB
     Indication: Juvenile idiopathic arthritis
     Dosage: UNK

REACTIONS (1)
  - Osteoporosis [Recovered/Resolved]
